FAERS Safety Report 15306919 (Version 1)
Quarter: 2018Q3

REPORT INFORMATION
  Report Type: Spontaneous
  Country: US (occurrence: US)
  Receive Date: 20180822
  Receipt Date: 20180822
  Transmission Date: 20181010
  Serious: No
  Sender: FDA-Public Use
  Company Number: US-SA-2018SA229818

PATIENT
  Age: 70 Year
  Sex: Male

DRUGS (2)
  1. TOUJEO [Suspect]
     Active Substance: INSULIN GLARGINE
     Indication: TYPE 2 DIABETES MELLITUS
     Dosage: 37 IU, QD
     Route: 065
     Dates: start: 20180811
  2. TOUJEO [Suspect]
     Active Substance: INSULIN GLARGINE
     Dosage: 40 IU IN MORNING
     Route: 065
     Dates: start: 20180811

REACTIONS (2)
  - Glycosylated haemoglobin increased [Unknown]
  - Blood glucose increased [Unknown]
